FAERS Safety Report 12494899 (Version 2)
Quarter: 2020Q2

REPORT INFORMATION
  Report Type: Spontaneous
  Country: US (occurrence: US)
  Receive Date: 20160624
  Receipt Date: 20200511
  Transmission Date: 20200713
  Serious: Yes (Death)
  Sender: FDA-Public Use
  Company Number: US-ASTRAZENECA-2016SE67118

PATIENT
  Age: 22996 Day
  Sex: Female
  Weight: 61.2 kg

DRUGS (23)
  1. LEVOTHYROXINE. [Concomitant]
     Active Substance: LEVOTHYROXINE
  2. DOVONEX [Concomitant]
     Active Substance: CALCIPOTRIENE
  3. PREMARIN [Concomitant]
     Active Substance: ESTROGENS, CONJUGATED
  4. METFORMIN [Concomitant]
     Active Substance: METFORMIN HYDROCHLORIDE
  5. BYETTA [Suspect]
     Active Substance: EXENATIDE
     Route: 058
     Dates: start: 20080715, end: 20081027
  6. DRONABINOL. [Concomitant]
     Active Substance: DRONABINOL
  7. OXYGEN. [Concomitant]
     Active Substance: OXYGEN
  8. LISINOPRIL HCTZ [Concomitant]
     Active Substance: HYDROCHLOROTHIAZIDE\LISINOPRIL
  9. DEXILANT [Concomitant]
     Active Substance: DEXLANSOPRAZOLE
  10. PRAVASTATIN. [Concomitant]
     Active Substance: PRAVASTATIN
  11. HUMALOG MIX [Concomitant]
     Active Substance: INSULIN LISPRO
  12. LISINOPRIL. [Concomitant]
     Active Substance: LISINOPRIL
  13. FUROSEMIDE. [Concomitant]
     Active Substance: FUROSEMIDE
  14. CREON [Concomitant]
     Active Substance: PANCRELIPASE AMYLASE\PANCRELIPASE LIPASE\PANCRELIPASE PROTEASE
  15. KLOR-CON [Concomitant]
     Active Substance: POTASSIUM CHLORIDE
  16. INSULIN [Concomitant]
     Active Substance: INSULIN NOS
  17. LAMICTAL [Concomitant]
     Active Substance: LAMOTRIGINE
  18. KEPPRA [Concomitant]
     Active Substance: LEVETIRACETAM
  19. XELODA [Concomitant]
     Active Substance: CAPECITABINE
  20. GLYBURIDE. [Concomitant]
     Active Substance: GLYBURIDE
  21. ASPIRIN. [Concomitant]
     Active Substance: ASPIRIN
  22. FENTANYL. [Concomitant]
     Active Substance: FENTANYL
  23. COREG [Concomitant]
     Active Substance: CARVEDILOL

REACTIONS (1)
  - Pancreatic carcinoma [Fatal]

NARRATIVE: CASE EVENT DATE: 20120823
